FAERS Safety Report 5330323-3 (Version None)
Quarter: 2007Q2

REPORT INFORMATION
  Report Type: 
  Country: None (occurrence: None)
  Receive Date: 20070521
  Receipt Date: 20070509
  Transmission Date: 20071010
  Serious: Yes (Disabling, Other)
  Sender: FDA-Public Use
  Company Number: BR-PFIZER INC-2004243856BR

PATIENT
  Sex: Female

DRUGS (4)
  1. DEPO-PROVERA [Suspect]
     Indication: MENSTRUAL DISCOMFORT
     Route: 030
     Dates: start: 20040808, end: 20040808
  2. DEPO-PROVERA [Suspect]
     Route: 030
     Dates: start: 20040901, end: 20040901
  3. DEPO-PROVERA [Suspect]
     Route: 030
     Dates: start: 20041008, end: 20041008
  4. FELDENE [Concomitant]
     Indication: ABDOMINAL PAIN

REACTIONS (13)
  - ASTHENIA [None]
  - BLOOD PROLACTIN INCREASED [None]
  - DIZZINESS [None]
  - DRUG TOXICITY [None]
  - EXCORIATION [None]
  - HORMONE LEVEL ABNORMAL [None]
  - INAPPROPRIATE SCHEDULE OF DRUG ADMINISTRATION [None]
  - LABYRINTHITIS [None]
  - MALAISE [None]
  - SKIN LESION [None]
  - VAGINAL INFECTION [None]
  - VIIITH NERVE LESION [None]
  - WEIGHT DECREASED [None]
